FAERS Safety Report 21956837 (Version 1)
Quarter: 2023Q1

REPORT INFORMATION
  Report Type: Spontaneous
  Country: US (occurrence: None)
  Receive Date: 20230203
  Receipt Date: 20230203
  Transmission Date: 20230418
  Serious: Yes (Other)
  Sender: FDA-Public Use
  Company Number: None

PATIENT
  Age: 84 Year
  Sex: Male
  Weight: 78.75 kg

DRUGS (1)
  1. SOUND BODY ARTIFICIAL TEARS [Suspect]
     Active Substance: POLYVINYL ALCOHOL\POVIDONE
     Dosage: FREQUENCY : AS NEEDED;?
     Route: 047
     Dates: start: 20221120, end: 20221122

REACTIONS (1)
  - Blindness [None]

NARRATIVE: CASE EVENT DATE: 20221122
